FAERS Safety Report 19109767 (Version 1)
Quarter: 2021Q2

REPORT INFORMATION
  Report Type: Report from Study
  Country: FR (occurrence: FR)
  Receive Date: 20210409
  Receipt Date: 20210409
  Transmission Date: 20210717
  Serious: Yes (Hospitalization)
  Sender: FDA-Public Use
  Company Number: FR-ROCHE-2702126

PATIENT
  Age: 71 Year
  Sex: Male
  Weight: 92.5 kg

DRUGS (5)
  1. ATEZOLIZUMAB. [Suspect]
     Active Substance: ATEZOLIZUMAB
     Indication: HEPATOCELLULAR CARCINOMA
     Dosage: ON 07/AUG/2020, HE RECEIVED MOST RECENT AND LAST DOSE OF ATEZOLIZUMAB PRIOR TO ONSET OF IMMUNE?RELAT
     Route: 042
     Dates: start: 20191014, end: 20200828
  2. AUGMENTIN [Suspect]
     Active Substance: AMOXICILLIN\CLAVULANATE POTASSIUM
     Indication: TOOTH ABSCESS
     Route: 065
     Dates: start: 20200817
  3. XL184 [Suspect]
     Active Substance: CABOZANTINIB
     Route: 048
     Dates: end: 20200915
  4. XL184 [Suspect]
     Active Substance: CABOZANTINIB
     Indication: HEPATOCELLULAR CARCINOMA
     Dosage: ON 19/AUG/2020, HE RECEIVED MOST RECENT AND LAST DOSE OF CABOZANTINIB PRIOR TO ONSET OF IMMUNE?RELAT
     Route: 048
     Dates: start: 20191014
  5. BIRODOGYL [Suspect]
     Active Substance: METRONIDAZOLE\SPIRAMYCIN
     Indication: TOOTH ABSCESS
     Route: 065
     Dates: start: 20200817

REACTIONS (1)
  - Immune-mediated enterocolitis [Recovered/Resolved]

NARRATIVE: CASE EVENT DATE: 20200820
